FAERS Safety Report 5503495-5 (Version None)
Quarter: 2007Q4

REPORT INFORMATION
  Report Type: 
  Country: None (occurrence: None)
  Receive Date: 20071029
  Receipt Date: 20071015
  Transmission Date: 20080405
  Serious: Yes (Death, Life-Threatening, Other)
  Sender: FDA-Public Use
  Company Number: 100#03#2007-04172

PATIENT
  Age: 35 Year
  Sex: Male

DRUGS (11)
  1. TRAMADOL HCL [Suspect]
     Indication: DRUG USE FOR UNKNOWN INDICATION
     Dosage: 100MG, AS NECESSARY
     Route: 048
     Dates: end: 20071005
  2. DIAZEPAM [Suspect]
     Indication: DRUG USE FOR UNKNOWN INDICATION
     Dosage: 4MG, THREE TIMES DAILY
     Route: 048
     Dates: end: 20071005
  3. DUROGESIC (FENTANYL), CLOPIRAMINE, FENTANYL) [Suspect]
     Indication: DRUG USE FOR UNKNOWN INDICATION
     Dosage: 75 UG, 1 HOUR
     Route: 062
     Dates: end: 20071005
  4. TEMAZEPAM [Suspect]
     Indication: DRUG USE FOR UNKNOWN INDICATION
     Dosage: 10MG
     Route: 048
     Dates: end: 20071005
  5. AMOXICILLIN [Concomitant]
  6. BUSCOPAN (HYOSCINE BUTYLBROMIDE) (HYOSCINE BUTYLBROMIDE) [Concomitant]
  7. CITALOPRAM HYDROBROMIDE [Concomitant]
  8. CYCLIZINE (CYCLIZINE) (CYCLIZINE) [Concomitant]
  9. OMEPRAZOLE [Concomitant]
  10. PARACETAMOL (PARACETAMOL) PARACETAMOL) [Concomitant]
  11. TEGRETOL RETARD (CARBAMAZEPINE) (CARBAMAZEPINE) [Concomitant]

REACTIONS (3)
  - CONFUSIONAL STATE [None]
  - HEPATIC ENCEPHALOPATHY [None]
  - OESOPHAGEAL HAEMORRHAGE [None]
